FAERS Safety Report 16648728 (Version 2)
Quarter: 2019Q3

REPORT INFORMATION
  Report Type: Report from Study
  Country: None (occurrence: CO)
  Receive Date: 20190730
  Receipt Date: 20190801
  Transmission Date: 20191004
  Serious: Yes (Other)
  Sender: FDA-Public Use
  Company Number: CO-ABBVIE-19K-036-2872305-00

PATIENT

DRUGS (2)
  1. SURVANTA [Suspect]
     Active Substance: BERACTANT
     Indication: RESPIRATORY DISTRESS
     Dosage: 8 ML VIAL SINGLE DOSE
     Route: 039
     Dates: start: 20190718, end: 20190718
  2. SURVANTA [Suspect]
     Active Substance: BERACTANT
     Dosage: 8 ML VIAL SINGLE DOSE
     Route: 039

REACTIONS (2)
  - Endotracheal intubation complication [Unknown]
  - Oxygen saturation decreased [Unknown]

NARRATIVE: CASE EVENT DATE: 20190718
